FAERS Safety Report 11239993 (Version 1)
Quarter: 2015Q3

REPORT INFORMATION
  Report Type: Spontaneous
  Country: BR (occurrence: BR)
  Receive Date: 20150706
  Receipt Date: 20150706
  Transmission Date: 20151125
  Serious: Yes (Death)
  Sender: FDA-Public Use
  Company Number: BR-PFIZER INC-2015216149

PATIENT
  Age: 31 Year
  Sex: Male

DRUGS (1)
  1. SUTENT [Suspect]
     Active Substance: SUNITINIB MALATE
     Indication: METASTATIC RENAL CELL CARCINOMA
     Dosage: 50 MG, CYCLIC (CYCLE 4 PER 2)
     Route: 048
     Dates: start: 201501, end: 201504

REACTIONS (3)
  - Disease progression [Unknown]
  - Cardiac arrest [Fatal]
  - Metastatic renal cell carcinoma [Unknown]

NARRATIVE: CASE EVENT DATE: 20150429
